FAERS Safety Report 4506617-8 (Version None)
Quarter: 2004Q4

REPORT INFORMATION
  Report Type: 
  Country: None (occurrence: None)
  Receive Date: 20041117
  Receipt Date: 20041104
  Transmission Date: 20050328
  Serious: Yes (Other)
  Sender: FDA-Public Use
  Company Number: 25593

PATIENT
  Age: 67 Year
  Sex: Male

DRUGS (1)
  1. ALDARA [Suspect]
     Indication: ACTINIC KERATOSIS
     Dosage: TOPICAL
     Route: 061
     Dates: start: 20041026, end: 20041001

REACTIONS (3)
  - APPLICATION SITE VESICLES [None]
  - EYELID PTOSIS [None]
  - FACIAL PALSY [None]
